FAERS Safety Report 9387839 (Version 3)
Quarter: 2013Q3

REPORT INFORMATION
  Report Type: Spontaneous
  Country: US (occurrence: US)
  Receive Date: 20130708
  Receipt Date: 20130809
  Transmission Date: 20140515
  Serious: Yes (Hospitalization, Other)
  Sender: FDA-Public Use
  Company Number: US-BAXTER-2013BAX025512

PATIENT
  Age: 59 Year
  Sex: Male

DRUGS (2)
  1. DIANEAL LOW CALCIUM (ULTRABAG) [Suspect]
     Indication: PERITONEAL DIALYSIS
     Route: 033
     Dates: start: 201207
  2. EXTRANEAL [Suspect]
     Indication: PERITONEAL DIALYSIS
     Route: 033

REACTIONS (7)
  - Pancreatitis [Unknown]
  - Poor peripheral circulation [Recovering/Resolving]
  - Dialysis related complication [Recovering/Resolving]
  - Vascular calcification [Recovering/Resolving]
  - Abasia [Unknown]
  - Arterial occlusive disease [Unknown]
  - Peritonitis [Recovering/Resolving]
